FAERS Safety Report 6821254-8 (Version None)
Quarter: 2010Q3

REPORT INFORMATION
  Report Type: 
  Country: None (occurrence: None)
  Receive Date: 20100707
  Receipt Date: 20080611
  Transmission Date: 20110219
  Serious: No
  Sender: FDA-Public Use
  Company Number: US-PFIZER INC-2008036098

PATIENT
  Sex: Female
  Weight: 68.2 kg

DRUGS (3)
  1. ZOLOFT [Suspect]
     Indication: DEPRESSION
     Dates: start: 20080201
  2. PRINZIDE [Concomitant]
     Indication: HYPERTENSION
  3. METFORMIN HYDROCHLORIDE/SITAGLIPTIN [Concomitant]
     Indication: DIABETES MELLITUS

REACTIONS (3)
  - ANXIETY [None]
  - CRYING [None]
  - DRUG INEFFECTIVE [None]
